FAERS Safety Report 8080783-2 (Version None)
Quarter: 2012Q1

REPORT INFORMATION
  Report Type: 
  Country: None (occurrence: None)
  Receive Date: 20120130
  Receipt Date: 20120130
  Transmission Date: 20120608
  Serious: Yes (Hospitalization, Other)
  Sender: FDA-Public Use
  Company Number: US-JNJFOC-20110709538

PATIENT
  Sex: Male
  Weight: 47.63 kg

DRUGS (7)
  1. INVEGA SUSTENNA [Suspect]
     Route: 030
  2. INVEGA SUSTENNA [Suspect]
     Route: 030
     Dates: start: 20110523
  3. INVEGA SUSTENNA [Suspect]
     Route: 030
     Dates: start: 20110426
  4. INVEGA [Concomitant]
     Route: 048
     Dates: start: 20110413
  5. INVEGA SUSTENNA [Suspect]
     Route: 030
     Dates: start: 20110525
  6. INVEGA SUSTENNA [Suspect]
     Route: 030
     Dates: start: 20110704
  7. INVEGA SUSTENNA [Suspect]
     Indication: PRODUCT USED FOR UNKNOWN INDICATION
     Route: 030
     Dates: start: 20110420

REACTIONS (4)
  - DELUSION [None]
  - MENTAL DISORDER [None]
  - DRUG DOSE OMISSION [None]
  - HOSPITALISATION [None]
